FAERS Safety Report 12685298 (Version 1)
Quarter: 2016Q3

REPORT INFORMATION
  Report Type: Spontaneous
  Country: US (occurrence: US)
  Receive Date: 20160825
  Receipt Date: 20160825
  Transmission Date: 20161109
  Serious: Yes (Hospitalization)
  Sender: FDA-Public Use
  Company Number: US-MEDA-2016080060

PATIENT
  Age: 80 Year
  Sex: Female
  Weight: 61 kg

DRUGS (9)
  1. VITAMIN B COMPLEX PLUS [Concomitant]
  2. SOMA [Suspect]
     Active Substance: CARISOPRODOL
     Indication: BACK PAIN
     Route: 048
     Dates: start: 20121128, end: 20121128
  3. TACROLIMUS. [Suspect]
     Active Substance: TACROLIMUS
     Indication: IMMUNOSUPPRESSION
     Dates: start: 20121120, end: 20121130
  4. IRON [Concomitant]
     Active Substance: IRON
  5. LEVOTHYROXINE. [Concomitant]
     Active Substance: LEVOTHYROXINE
  6. OCUVITE [Concomitant]
     Active Substance: VITAMINS
  7. MYCOPHENOLATE MOFETIL. [Suspect]
     Active Substance: MYCOPHENOLATE MOFETIL
     Indication: IMMUNOSUPPRESSION
     Dates: start: 20121120, end: 20121201
  8. HESC-RPE [Suspect]
     Active Substance: INVESTIGATIONAL PRODUCT
     Indication: DRY AGE-RELATED MACULAR DEGENERATION
     Dosage: 100000 CELLS TOTAL
     Route: 031
     Dates: start: 20121127, end: 20121127
  9. ZOLPIDEM TARTRATE. [Concomitant]
     Active Substance: ZOLPIDEM TARTRATE

REACTIONS (2)
  - Urinary tract infection [Recovered/Resolved]
  - Mental status changes [Recovered/Resolved]

NARRATIVE: CASE EVENT DATE: 20121129
